FAERS Safety Report 17641961 (Version 2)
Quarter: 2020Q2

REPORT INFORMATION
  Report Type: Report from Study
  Country: FR (occurrence: FR)
  Receive Date: 20200407
  Receipt Date: 20200420
  Transmission Date: 20200713
  Serious: Yes (Death, Other)
  Sender: FDA-Public Use
  Company Number: FR-AUROBINDO-AUR-APL-2020-017300

PATIENT
  Age: 72 Year
  Sex: Male

DRUGS (2)
  1. BELEODAQ [Suspect]
     Active Substance: BELINOSTAT
     Indication: ANGIOIMMUNOBLASTIC T-CELL LYMPHOMA
     Dosage: UNK UNK, CYCLICAL
     Route: 065
     Dates: start: 20200123, end: 20200126
  2. BELEODAQ [Suspect]
     Active Substance: BELINOSTAT
     Dosage: UNK UNK, CYCLICAL
     Route: 065
     Dates: start: 20200221, end: 20200225

REACTIONS (3)
  - Circulatory collapse [Fatal]
  - Haemophagocytic lymphohistiocytosis [Fatal]
  - Sepsis [Fatal]
